FAERS Safety Report 9553530 (Version 1)
Quarter: 2013Q2

REPORT INFORMATION
  Report Type: Spontaneous
  Country: US (occurrence: None)
  Receive Date: 20130507
  Receipt Date: 20130507
  Transmission Date: 20140414
  Serious: Yes (Other)
  Sender: FDA-Public Use
  Company Number: PHEH2012US021403

PATIENT
  Sex: 0

DRUGS (1)
  1. TASIGNA (AMN107) CAPSULE [Suspect]

REACTIONS (5)
  - Blood bilirubin increased [None]
  - Febrile neutropenia [None]
  - Candida infection [None]
  - Alanine aminotransferase increased [None]
  - Aspartate aminotransferase increased [None]
